FAERS Safety Report 8919075 (Version 1)
Quarter: 2012Q4

REPORT INFORMATION
  Report Type: 
  Country: US (occurrence: US)
  Receive Date: 20121121
  Receipt Date: 20121121
  Transmission Date: 20130627
  Serious: Yes (Other)
  Sender: FDA-Public Use
  Company Number: US-ASTELLAS-2012US010308

PATIENT
  Age: 56 Year
  Sex: Male
  Weight: 91 kg

DRUGS (2)
  1. PROGRAF [Suspect]
     Indication: LIVER TRANSPLANT
     Dosage: 1.5 mg, bid
     Route: 048
     Dates: start: 20070913
  2. PROGRAF [Suspect]
     Dosage: 2 mg, bid
     Route: 048

REACTIONS (18)
  - Coronary artery disease [Unknown]
  - Vitamin D deficiency [Unknown]
  - Rotator cuff syndrome [Unknown]
  - Bursitis [Unknown]
  - Osteoarthritis [Unknown]
  - Spinal osteoarthritis [Unknown]
  - Pelvic pain [Unknown]
  - Intervertebral disc degeneration [Unknown]
  - Arthralgia [Unknown]
  - Cytomegalovirus infection [Unknown]
  - Blood creatinine increased [Unknown]
  - Pain in extremity [Unknown]
  - Dyspnoea [Unknown]
  - Pulmonary mass [Not Recovered/Not Resolved]
  - Fatigue [Unknown]
  - Pyrexia [Unknown]
  - Insomnia [Unknown]
  - Diffuse large B-cell lymphoma [Not Recovered/Not Resolved]
